FAERS Safety Report 4579127-X (Version None)
Quarter: 2005Q1

REPORT INFORMATION
  Report Type: 
  Country: None (occurrence: None)
  Receive Date: 20050121
  Receipt Date: 20040420
  Transmission Date: 20050727
  Serious: Yes (Hospitalization)
  Sender: FDA-Public Use
  Company Number: STA-AE-04-MTX-164

PATIENT
  Age: 60 Year
  Sex: Male

DRUGS (7)
  1. METHOTREXATE [Suspect]
     Indication: RHEUMATOID ARTHRITIS
     Dosage: 25 MG 1X PER 1 WK, ORAL
     Route: 048
     Dates: start: 19980514
  2. REMICADE [Suspect]
     Indication: RHEUMATOID ARTHRITIS
     Dosage: 500 MG 1X PER 6 WK, INTRAVENOUS
     Route: 042
     Dates: start: 20000817
  3. ACETYLSALICYLIC ACID SRT [Concomitant]
  4. PREVACID [Concomitant]
  5. FOLIC ACID [Concomitant]
  6. PRAVACHOL [Concomitant]
  7. TOPROL-XL [Concomitant]

REACTIONS (1)
  - PNEUMONIA [None]
